FAERS Safety Report 9527951 (Version 1)
Quarter: 2013Q1

REPORT INFORMATION
  Report Type: Spontaneous
  Country: US (occurrence: None)
  Receive Date: 20130314
  Receipt Date: 20130314
  Transmission Date: 20140127
  Serious: No
  Sender: FDA-Public Use
  Company Number: 1209USA002453

PATIENT
  Age: 53 Year
  Sex: Male
  Weight: 114.7 kg

DRUGS (1)
  1. VICTRELIS (BOCEPREVIR) CAPSULE, 200MG [Suspect]
     Indication: HEPATITIS C
     Dosage: 800 MG, TID, ORAL
     Route: 048
     Dates: start: 20120720

REACTIONS (4)
  - Weight decreased [None]
  - Dysgeusia [None]
  - Nausea [None]
  - Vomiting [None]
